FAERS Safety Report 4503838-5 (Version None)
Quarter: 2004Q4

REPORT INFORMATION
  Report Type: 
  Country: None (occurrence: None)
  Receive Date: 20041117
  Receipt Date: 20041109
  Transmission Date: 20050328
  Serious: Yes (Hospitalization)
  Sender: FDA-Public Use
  Company Number: US-MERCK-0411USA01723

PATIENT
  Age: 76 Year
  Sex: Female

DRUGS (1)
  1. VIOXX [Suspect]
     Indication: ARTHRITIS
     Route: 048
     Dates: end: 20040101

REACTIONS (7)
  - ANGINA PECTORIS [None]
  - EXTRASYSTOLES [None]
  - FALL [None]
  - HYPERHIDROSIS [None]
  - PALPITATIONS [None]
  - TACHYCARDIA [None]
  - TREMOR [None]
